FAERS Safety Report 9220033 (Version 2)
Quarter: 2013Q2

REPORT INFORMATION
  Report Type: Spontaneous
  Country: HU (occurrence: HU)
  Receive Date: 20130409
  Receipt Date: 20130520
  Transmission Date: 20140414
  Serious: Yes (Other)
  Sender: FDA-Public Use
  Company Number: HU-ROCHE-1210267

PATIENT
  Age: 48 Year
  Sex: Male

DRUGS (2)
  1. ACTILYSE [Suspect]
     Indication: CEREBROVASCULAR ACCIDENT
     Route: 042
  2. ACTILYSE [Suspect]
     Route: 013

REACTIONS (2)
  - Neurological decompensation [Unknown]
  - Drug ineffective [Unknown]
